FAERS Safety Report 8210656-3 (Version None)
Quarter: 2012Q1

REPORT INFORMATION
  Report Type: 
  Country: None (occurrence: None)
  Receive Date: 20120314
  Receipt Date: 20120305
  Transmission Date: 20120608
  Serious: Yes (Other)
  Sender: FDA-Public Use
  Company Number: US-ASTRAZENECA-2010SE02458

PATIENT
  Age: 58 Year
  Sex: Male
  Weight: 66.7 kg

DRUGS (20)
  1. NORVASC [Concomitant]
  2. AZMACORT [Concomitant]
  3. TRAMADOL HCL [Concomitant]
  4. OMEPRAZOLE [Suspect]
     Route: 048
  5. CHOLESTEROL MEDICATION [Concomitant]
  6. SYMBICORT [Suspect]
     Indication: CHRONIC OBSTRUCTIVE PULMONARY DISEASE
     Dosage: 160/4.5, 1 PUFF, BID
     Route: 055
  7. SYMBICORT [Suspect]
     Dosage: 160/4.5, 2 PUFF, BID
     Route: 055
     Dates: start: 20080305
  8. VALIUM [Concomitant]
     Indication: HYPERTENSION
     Dosage: 0.5 MG UP TO 10 MG , PRN
     Route: 048
  9. VALIUM [Concomitant]
     Route: 048
  10. VALIUM [Concomitant]
     Route: 048
  11. METFORMIN [Concomitant]
     Indication: DIABETES MELLITUS
  12. ZOCOR [Concomitant]
  13. SPIRIVA [Concomitant]
  14. SYMBICORT [Suspect]
     Indication: BRONCHIAL HYPERREACTIVITY
     Dosage: 160/4.5, 1 PUFF, BID
     Route: 055
  15. OMEPRAZOLE [Concomitant]
     Indication: GASTROOESOPHAGEAL REFLUX DISEASE
  16. SYMBICORT [Suspect]
     Dosage: 160/4.5, 2 PUFF, BID
     Route: 055
     Dates: start: 20080305
  17. VALIUM [Concomitant]
     Indication: ANXIETY
     Dosage: 0.5 MG UP TO 10 MG , PRN
     Route: 048
  18. SYMBICORT [Suspect]
     Indication: ASTHMA
     Dosage: 160/4.5, 1 PUFF, BID
     Route: 055
  19. SYMBICORT [Suspect]
     Dosage: 160/4.5, 2 PUFF, BID
     Route: 055
     Dates: start: 20080305
  20. LISINOPRIL [Concomitant]
     Dosage: 10/ 20

REACTIONS (6)
  - TRANSIENT ISCHAEMIC ATTACK [None]
  - PNEUMONIA [None]
  - SPONDYLITIS [None]
  - DYSPNOEA [None]
  - NERVE COMPRESSION [None]
  - RESPIRATORY DISORDER [None]
